FAERS Safety Report 8031426-5 (Version None)
Quarter: 2011Q4

REPORT INFORMATION
  Report Type: 
  Country: None (occurrence: None)
  Receive Date: 20111202
  Receipt Date: 20100831
  Transmission Date: 20120403
  Serious: Yes (Hospitalization, Other)
  Sender: FDA-Public Use
  Company Number: 2010SP046916

PATIENT
  Age: 21 Year
  Sex: Female
  Weight: 86.1834 kg

DRUGS (1)
  1. NUVARING [Suspect]
     Indication: CONTRACEPTION
     Dates: start: 20070101, end: 20080101

REACTIONS (5)
  - PULMONARY EMBOLISM [None]
  - BREAST MASS [None]
  - DEEP VEIN THROMBOSIS [None]
  - JOINT INJURY [None]
  - FALL [None]
